FAERS Safety Report 14666341 (Version 1)
Quarter: 2018Q1

REPORT INFORMATION
  Report Type: Spontaneous
  Country: US (occurrence: US)
  Receive Date: 20180320
  Receipt Date: 20180320
  Transmission Date: 20180509
  Serious: Yes (Life-Threatening, Other)
  Sender: FDA-Public Use
  Company Number: None

PATIENT
  Age: 22 Year
  Sex: Female
  Weight: 75.33 kg

DRUGS (1)
  1. MICROGESTIN 1/20 [Suspect]
     Active Substance: ETHINYL ESTRADIOL\NORETHINDRONE ACETATE
     Indication: POLYCYSTIC OVARIES
     Dosage: ?          QUANTITY:21 TABLET(S);?
     Route: 048
     Dates: start: 20160425, end: 20180320

REACTIONS (1)
  - Transient ischaemic attack [None]

NARRATIVE: CASE EVENT DATE: 20180320
